FAERS Safety Report 10066754 (Version 1)
Quarter: 2014Q2

REPORT INFORMATION
  Report Type: Spontaneous
  Country: US (occurrence: US)
  Receive Date: 20140408
  Receipt Date: 20140408
  Transmission Date: 20141212
  Serious: No
  Sender: FDA-Public Use
  Company Number: US-GILEAD-2014-0098837

PATIENT
  Sex: Male

DRUGS (2)
  1. SOFOSBUVIR [Suspect]
     Indication: HEPATITIS C
     Route: 065
  2. RIBAVIRIN [Concomitant]

REACTIONS (1)
  - Bleeding varicose vein [Unknown]
